FAERS Safety Report 6249984-X (Version None)
Quarter: 2009Q2

REPORT INFORMATION
  Report Type: 
  Country: None (occurrence: None)
  Receive Date: 20090625
  Receipt Date: 20090616
  Transmission Date: 20091009
  Serious: No
  Sender: FDA-Public Use
  Company Number: 299476

PATIENT
  Age: 57 Year
  Sex: Female
  Weight: 108.8633 kg

DRUGS (5)
  1. BUPIVACAINE [Suspect]
     Indication: PAIN MANAGEMENT
     Dosage: 5 ML, INJECTION
     Dates: start: 20090603
  2. ISOVUE-128 [Suspect]
     Indication: NECK PAIN
     Dosage: 1 ML, EPIDURAL
     Route: 008
     Dates: start: 20090603, end: 20090603
  3. KENALOG-40 [Suspect]
     Indication: NECK PAIN
     Dosage: 80 MG, EPIDURAL
     Route: 008
     Dates: start: 20090603, end: 20090603
  4. LIDOCAINE [Concomitant]
  5. BENZYLHYDROCHLORTHIAZIDE [Concomitant]

REACTIONS (5)
  - BLOOD PRESSURE INCREASED [None]
  - DIZZINESS [None]
  - FEELING ABNORMAL [None]
  - HALLUCINATION, VISUAL [None]
  - MEMORY IMPAIRMENT [None]
